FAERS Safety Report 8011851-9 (Version None)
Quarter: 2011Q4

REPORT INFORMATION
  Report Type: 
  Country: None (occurrence: None)
  Receive Date: 20111228
  Receipt Date: 20111220
  Transmission Date: 20120403
  Serious: Yes (Hospitalization)
  Sender: FDA-Public Use
  Company Number: US-JNJFOC-20111209539

PATIENT
  Sex: Male
  Weight: 100.47 kg

DRUGS (8)
  1. LIDOCAINE [Concomitant]
     Route: 061
  2. MIRALAX [Concomitant]
  3. PERCOCET [Concomitant]
  4. THALIDOMIDE [Concomitant]
  5. INFLIXIMAB, RECOMBINANT [Suspect]
     Indication: INFLAMMATORY BOWEL DISEASE
     Route: 042
     Dates: start: 20050221, end: 20060602
  6. ATIVAN [Concomitant]
  7. BACTROBAN [Concomitant]
     Route: 061
  8. ANTIBIOTICS [Concomitant]
     Indication: INFLAMMATORY BOWEL DISEASE

REACTIONS (1)
  - PILONIDAL CYST [None]
